FAERS Safety Report 9066621 (Version 1)
Quarter: 2013Q1

REPORT INFORMATION
  Report Type: Spontaneous
  Country: US (occurrence: US)
  Receive Date: 20130214
  Receipt Date: 20130214
  Transmission Date: 20140127
  Serious: Yes (Hospitalization)
  Sender: FDA-Public Use
  Company Number: US-AMGEN-USASP2013008807

PATIENT
  Age: 41 Year
  Sex: Male
  Weight: 83 kg

DRUGS (2)
  1. ENBREL [Suspect]
     Indication: PRODUCT USED FOR UNKNOWN INDICATION
     Dosage: UNK
  2. HUMIRA [Concomitant]
     Indication: PSORIASIS
     Dosage: 40 MG, UNK
     Dates: start: 2011

REACTIONS (4)
  - Myocardial infarction [Unknown]
  - Cardiac valve disease [Unknown]
  - Angina pectoris [Unknown]
  - Nasal congestion [Unknown]
